FAERS Safety Report 10161932 (Version 1)
Quarter: 2014Q2

REPORT INFORMATION
  Report Type: Spontaneous
  Country: US (occurrence: US)
  Receive Date: 20140509
  Receipt Date: 20140509
  Transmission Date: 20141212
  Serious: Yes (Other)
  Sender: FDA-Public Use
  Company Number: US-SUN PHARMACEUTICAL INDUSTRIES LTD-2014SUN00995

PATIENT
  Age: 55 Year
  Sex: Male

DRUGS (3)
  1. ANASTRAZOLE TABLETS 1MG [Suspect]
     Indication: OESTRADIOL INCREASED
     Dosage: 1 MG, QD
     Route: 065
  2. ANASTRAZOLE TABLETS 1MG [Suspect]
     Indication: CARDIOVASCULAR EVENT PROPHYLAXIS
  3. ANDROGEL [Suspect]
     Indication: SEXUAL DYSFUNCTION
     Dosage: 50 MG, QD
     Route: 065

REACTIONS (2)
  - Osteonecrosis of jaw [Recovered/Resolved]
  - Thrombosis [Recovered/Resolved]
